FAERS Safety Report 17038950 (Version 1)
Quarter: 2019Q4

REPORT INFORMATION
  Report Type: Spontaneous
  Country: US (occurrence: US)
  Receive Date: 20191115
  Receipt Date: 20191115
  Transmission Date: 20200122
  Serious: No
  Sender: FDA-Public Use
  Company Number: US-BAUSCH-BL-2019-055016

PATIENT
  Sex: Female
  Weight: 44.49 kg

DRUGS (5)
  1. RETIN-A [Suspect]
     Active Substance: TRETINOIN
     Indication: PRODUCT USE IN UNAPPROVED INDICATION
  2. RETIN-A [Suspect]
     Active Substance: TRETINOIN
     Indication: SKIN WRINKLING
     Route: 061
     Dates: start: 2019, end: 201909
  3. RETIN-A [Suspect]
     Active Substance: TRETINOIN
     Indication: PRODUCT USE IN UNAPPROVED INDICATION
  4. RETIN-A [Suspect]
     Active Substance: TRETINOIN
     Indication: SKIN WRINKLING
     Dosage: THERAPY START: APPROXIMATELY SIX MONTHS AGO
     Route: 061
     Dates: start: 2019, end: 2019
  5. RETIN-A [Suspect]
     Active Substance: TRETINOIN
     Indication: SUNBURN

REACTIONS (3)
  - Drug ineffective for unapproved indication [Unknown]
  - Alopecia [Unknown]
  - Product use in unapproved indication [Unknown]

NARRATIVE: CASE EVENT DATE: 2019
